FAERS Safety Report 8232578-4 (Version None)
Quarter: 2012Q1

REPORT INFORMATION
  Report Type: 
  Country: None (occurrence: None)
  Receive Date: 20120323
  Receipt Date: 20120314
  Transmission Date: 20120608
  Serious: Yes (Hospitalization)
  Sender: FDA-Public Use
  Company Number: DE-INCYTE CORPORATION-2012IN000201

PATIENT
  Sex: Male
  Weight: 72 kg

DRUGS (10)
  1. INCB018424 [Suspect]
     Dosage: 20 MG, UNK
     Route: 048
     Dates: start: 20110915, end: 20120110
  2. PANTOPRAZOLE [Concomitant]
  3. ALLOPURINOL [Concomitant]
  4. CREON [Concomitant]
  5. NEBIVOLOL HCL [Concomitant]
  6. INCB018424 [Suspect]
     Indication: POLYCYTHAEMIA VERA
     Dosage: 15 MG, UNK
     Route: 048
     Dates: start: 20110818
  7. ASPIRIN [Concomitant]
     Dosage: UNK
     Dates: start: 20080701
  8. HYDROXYUREA [Concomitant]
     Dosage: UNK
     Dates: start: 20110314
  9. ATACAND [Concomitant]
  10. INCB018424 [Suspect]
     Dosage: UNK
     Route: 048
     Dates: start: 20120112, end: 20120308

REACTIONS (3)
  - TUBERCULOSIS [None]
  - EXTRAMEDULLARY HAEMOPOIESIS [None]
  - BRONCHOPULMONARY ASPERGILLOSIS [None]
